FAERS Safety Report 10990812 (Version 1)
Quarter: 2015Q1

REPORT INFORMATION
  Report Type: Spontaneous
  Country: US (occurrence: None)
  Receive Date: 20150330
  Receipt Date: 20150330
  Transmission Date: 20150721
  Serious: Yes (Other)
  Sender: FDA-Public Use
  Company Number: US-2015-10031

PATIENT
  Sex: Male

DRUGS (1)
  1. ABILIFY MAINTENA [Suspect]
     Active Substance: ARIPIPRAZOLE
     Indication: SCHIZOAFFECTIVE DISORDER
     Dates: start: 20141211

REACTIONS (6)
  - Off label use [None]
  - Nausea [None]
  - Drug administered at inappropriate site [None]
  - Vomiting [None]
  - Injection site swelling [None]
  - Injection site erythema [None]

NARRATIVE: CASE EVENT DATE: 20141211
